FAERS Safety Report 12013662 (Version 1)
Quarter: 2016Q1

REPORT INFORMATION
  Report Type: Spontaneous
  Country: IR (occurrence: IR)
  Receive Date: 20160205
  Receipt Date: 20160205
  Transmission Date: 20160526
  Serious: Yes (Hospitalization)
  Sender: FDA-Public Use
  Company Number: IR-BD RX INC-2016BDR00008

PATIENT
  Age: 23 Year
  Sex: Male

DRUGS (2)
  1. NUTRITIONAL AND BODYBULDING SUPPLEMENTS [Concomitant]
     Route: 065
  2. DEXAMETHASONE SODIUM PHOSPHATE. [Suspect]
     Active Substance: DEXAMETHASONE SODIUM PHOSPHATE
     Dosage: UNK
     Route: 030

REACTIONS (4)
  - Hyperhomocysteinaemia [Recovered/Resolved]
  - Coronary artery stenosis [Unknown]
  - Myocardial infarction [Recovered/Resolved]
  - Drug abuse [Unknown]
